FAERS Safety Report 20437038 (Version 1)
Quarter: 2022Q1

REPORT INFORMATION
  Report Type: Spontaneous
  Country: US (occurrence: None)
  Receive Date: 20220207
  Receipt Date: 20220207
  Transmission Date: 20220423
  Serious: Yes (Hospitalization, Other)
  Sender: FDA-Public Use
  Company Number: US-Hikma Pharmaceuticals-US-H14001-22-00374

PATIENT
  Age: 39 Year
  Sex: Male
  Weight: 156 kg

DRUGS (1)
  1. CEFAZOLIN [Suspect]
     Active Substance: CEFAZOLIN
     Indication: Streptococcal infection
     Route: 042
     Dates: start: 20220120, end: 20220120

REACTIONS (3)
  - Unresponsive to stimuli [Unknown]
  - Resuscitation [Unknown]
  - Drug hypersensitivity [Unknown]

NARRATIVE: CASE EVENT DATE: 20220120
